FAERS Safety Report 8989716 (Version 1)
Quarter: 2012Q4

REPORT INFORMATION
  Report Type: 
  Country: JP (occurrence: JP)
  Receive Date: 20121228
  Receipt Date: 20121228
  Transmission Date: 20130627
  Serious: Yes (Other)
  Sender: FDA-Public Use
  Company Number: JP-TEVA-377521ISR

PATIENT
  Age: 76 Year
  Sex: Female
  Weight: 49.5 kg

DRUGS (2)
  1. CISPLATIN [Suspect]
     Indication: CERVIX CARCINOMA
     Dosage: 5 Milligram Daily; intra-arterial, 7 day schedule every 28 days
  2. FLUOROURACIL [Suspect]
     Indication: CERVIX CARCINOMA
     Dosage: 250 Milligram Daily; intra-arterial, 7 day schedule every 28 days

REACTIONS (2)
  - Aortitis [Recovered/Resolved]
  - Vasculitis [Recovered/Resolved]
